FAERS Safety Report 12700181 (Version 6)
Quarter: 2017Q3

REPORT INFORMATION
  Report Type: Spontaneous
  Country: US (occurrence: US)
  Receive Date: 20160830
  Receipt Date: 20170707
  Transmission Date: 20171127
  Serious: Yes (Other)
  Sender: FDA-Public Use
  Company Number: US-TEVA-689400USA

PATIENT
  Age: 81 Year
  Sex: Male

DRUGS (6)
  1. LUPRON [Suspect]
     Active Substance: LEUPROLIDE ACETATE
     Route: 065
  2. CIPROFLOXACIN HCL [Suspect]
     Active Substance: CIPROFLOXACIN HYDROCHLORIDE
     Route: 065
  3. METRONIDAZOLE. [Suspect]
     Active Substance: METRONIDAZOLE
     Route: 065
  4. XTANDI [Suspect]
     Active Substance: ENZALUTAMIDE
     Indication: PROSTATE CANCER
     Dosage: 160 MILLIGRAM DAILY;
     Route: 048
     Dates: start: 20160316
  5. XTANDI [Suspect]
     Active Substance: ENZALUTAMIDE
     Dosage: 160 MILLIGRAM DAILY;
     Route: 048
     Dates: start: 20160402
  6. NILUTAMIDE. [Suspect]
     Active Substance: NILUTAMIDE
     Route: 065
     Dates: start: 20090123

REACTIONS (18)
  - Hot flush [Not Recovered/Not Resolved]
  - Abnormal dreams [Recovering/Resolving]
  - Feeling abnormal [Not Recovered/Not Resolved]
  - Fatigue [Unknown]
  - Arthralgia [Not Recovered/Not Resolved]
  - Pain in extremity [Not Recovered/Not Resolved]
  - Pain [Not Recovered/Not Resolved]
  - Insomnia [Recovering/Resolving]
  - Diverticulitis [Unknown]
  - Asthenia [Recovering/Resolving]
  - Flatulence [Unknown]
  - Prostatic specific antigen increased [Unknown]
  - Hyperhidrosis [Unknown]
  - Initial insomnia [Unknown]
  - Apathy [Not Recovered/Not Resolved]
  - Burning sensation [Recovered/Resolved]
  - Somnolence [Recovering/Resolving]
  - Decreased interest [Recovering/Resolving]

NARRATIVE: CASE EVENT DATE: 201604
